FAERS Safety Report 6072737-2 (Version None)
Quarter: 2009Q1

REPORT INFORMATION
  Report Type: 
  Country: None (occurrence: None)
  Receive Date: 20090210
  Receipt Date: 20090204
  Transmission Date: 20090719
  Serious: No
  Sender: FDA-Public Use
  Company Number: US-B.I. PHARMACEUTICALS,INC./RIDGEFIELD-2009-BP-01526BP

PATIENT
  Sex: Male

DRUGS (1)
  1. FLOMAX [Suspect]
     Indication: BENIGN PROSTATIC HYPERPLASIA
     Dosage: .4MG
     Route: 048
     Dates: start: 20080922, end: 20081208

REACTIONS (9)
  - ANAL SPHINCTER ATONY [None]
  - ANXIETY [None]
  - BODY DYSMORPHIC DISORDER [None]
  - DIARRHOEA [None]
  - DYSURIA [None]
  - FAECAL INCONTINENCE [None]
  - MICTURITION URGENCY [None]
  - RESIDUAL URINE [None]
  - URINARY INCONTINENCE [None]
